FAERS Safety Report 7149334-0 (Version None)
Quarter: 2010Q4

REPORT INFORMATION
  Report Type: 
  Country: None (occurrence: None)
  Receive Date: 20101209
  Receipt Date: 20101201
  Transmission Date: 20110411
  Serious: Yes (Hospitalization, Other)
  Sender: FDA-Public Use
  Company Number: GB-ABBOTT-10P-167-0689037-00

PATIENT
  Sex: Male

DRUGS (1)
  1. HUMIRA [Suspect]
     Indication: ANKYLOSING SPONDYLITIS
     Route: 058
     Dates: start: 20090101, end: 20091101

REACTIONS (4)
  - HAEMORRHOIDS [None]
  - HEADACHE [None]
  - LOWER RESPIRATORY TRACT INFECTION [None]
  - URINARY TRACT INFECTION [None]
